FAERS Safety Report 25591822 (Version 1)
Quarter: 2025Q3

REPORT INFORMATION
  Report Type: Report from Study
  Country: US (occurrence: US)
  Receive Date: 20250722
  Receipt Date: 20250722
  Transmission Date: 20251020
  Serious: No
  Sender: VANDA PHARMACEUTICALS
  Company Number: US-VANDA PHARMACEUTICALS, INC-2024TASUS007126

PATIENT
  Sex: Female
  Weight: 39.002 kg

DRUGS (1)
  1. HETLIOZ LQ [Suspect]
     Active Substance: TASIMELTEON
     Indication: Chromosomal deletion
     Dosage: 20 MILLIGRAM (5ML), QHS (ONE HOUR BEFORE BEDTIME AT THE SAME TIME EVERY NIGHT WITHOUT FOOD)
     Route: 048

REACTIONS (5)
  - Sleep disorder [Unknown]
  - Aggression [Unknown]
  - Agitation [Unknown]
  - Behaviour disorder [Unknown]
  - Adverse event [Unknown]
